FAERS Safety Report 23169997 (Version 1)
Quarter: 2023Q4

REPORT INFORMATION
  Report Type: Spontaneous
  Country: ES (occurrence: ES)
  Receive Date: 20231110
  Receipt Date: 20231110
  Transmission Date: 20240110
  Serious: Yes (Other)
  Sender: FDA-Public Use
  Company Number: None

PATIENT
  Age: 51 Year
  Sex: Male

DRUGS (1)
  1. SIMVASTATIN [Suspect]
     Active Substance: SIMVASTATIN
     Indication: Dyslipidaemia
     Dosage: 20 MILLIGRAM, QD,1 EVERY 24 HOURS
     Route: 048
     Dates: start: 20230710, end: 20231016

REACTIONS (1)
  - Genital ulcer syndrome [Recovered/Resolved]

NARRATIVE: CASE EVENT DATE: 20230725
